FAERS Safety Report 25051436 (Version 1)
Quarter: 2025Q1

REPORT INFORMATION
  Report Type: Spontaneous
  Country: US (occurrence: None)
  Receive Date: 20250307
  Receipt Date: 20250307
  Transmission Date: 20250409
  Serious: Yes (Other)
  Sender: FDA-CTU
  Company Number: None

PATIENT
  Age: 82 Year
  Sex: Male

DRUGS (1)
  1. LORBRENA [Suspect]
     Active Substance: LORLATINIB
     Indication: Small cell lung cancer
     Dosage: 100 MG DAILY ORL
     Route: 048
     Dates: start: 20240719

REACTIONS (2)
  - Somnolence [None]
  - Tinnitus [None]

NARRATIVE: CASE EVENT DATE: 20250224
